FAERS Safety Report 5605891-4 (Version None)
Quarter: 2008Q1

REPORT INFORMATION
  Report Type: 
  Country: None (occurrence: None)
  Receive Date: 20080124
  Receipt Date: 20080121
  Transmission Date: 20080703
  Serious: Yes (Hospitalization)
  Sender: FDA-Public Use
  Company Number: 2008SP001555

PATIENT
  Age: 52 Year
  Sex: Male

DRUGS (2)
  1. PEGATRON (PEGINTERFERON ALFA-2B W/RIBAVIRIN) (PEGYLATED INTERFERON ALF [Suspect]
     Indication: HEPATITIS C
     Dosage: 100 MCG; QW; SC, 800 MG; QD; PO
     Dates: end: 20070929
  2. PEGATRON (PEGINTERFERON ALFA-2B W/RIBAVIRIN) (PEGYLATED INTERFERON ALF [Suspect]
     Indication: HEPATITIS C
     Dosage: 100 MCG; QW; SC, 800 MG; QD; PO
     Dates: end: 20070929

REACTIONS (1)
  - SUBARACHNOID HAEMORRHAGE [None]
